FAERS Safety Report 7583493-0 (Version None)
Quarter: 2011Q2

REPORT INFORMATION
  Report Type: 
  Country: None (occurrence: None)
  Receive Date: 20110630
  Receipt Date: 20110622
  Transmission Date: 20111010
  Serious: Yes (Other)
  Sender: FDA-Public Use
  Company Number: US-ROCHE-769888

PATIENT
  Sex: Male
  Weight: 68 kg

DRUGS (4)
  1. ACCUTANE [Suspect]
     Route: 048
     Dates: start: 19930101
  2. ACCUTANE [Suspect]
     Indication: ACNE
     Route: 048
     Dates: start: 19920101
  3. ACCUTANE [Suspect]
     Route: 048
     Dates: start: 19940722
  4. ACCUTANE [Suspect]
     Route: 048
     Dates: start: 19941117, end: 19950101

REACTIONS (2)
  - ANXIETY [None]
  - COLITIS ULCERATIVE [None]
